FAERS Safety Report 25345904 (Version 1)
Quarter: 2025Q2

REPORT INFORMATION
  Report Type: Spontaneous
  Country: CZ (occurrence: CZ)
  Receive Date: 20250522
  Receipt Date: 20250522
  Transmission Date: 20250717
  Serious: Yes (Hospitalization, Other)
  Sender: EXELA PHARMA SCIENCES
  Company Number: CZ-EXELAPHARMA-2025EXLA00087

PATIENT
  Age: 89 Year
  Sex: Female

DRUGS (1)
  1. BLOXIVERZ [Suspect]
     Active Substance: NEOSTIGMINE METHYLSULFATE
     Indication: Intestinal pseudo-obstruction

REACTIONS (1)
  - Drug ineffective for unapproved indication [Unknown]
